FAERS Safety Report 12617999 (Version 1)
Quarter: 2016Q3

REPORT INFORMATION
  Report Type: Spontaneous
  Country: DE (occurrence: DE)
  Receive Date: 20160803
  Receipt Date: 20160803
  Transmission Date: 20161109
  Serious: Yes (Other)
  Sender: FDA-Public Use
  Company Number: DE-AUROBINDO-AUR-APL-2016-10104

PATIENT
  Age: 29 Year
  Sex: Female
  Weight: 93 kg

DRUGS (13)
  1. CITALOPRAM [Concomitant]
     Active Substance: CITALOPRAM HYDROBROMIDE
     Indication: DEPRESSION
     Dosage: 20 MG, ONCE A DAY
     Route: 048
  2. METHYLDOPA. [Concomitant]
     Active Substance: METHYLDOPA
     Indication: HYPERTENSION
     Dosage: 250 MG, ONCE A DAY
     Route: 048
  3. MIRTAZAPINE. [Suspect]
     Active Substance: MIRTAZAPINE
     Indication: DEPRESSION
     Dosage: 60 [MG/D ]/DOSAGE BETWEEN 30 AND 60 MG/D
     Route: 048
     Dates: start: 20150706, end: 20160329
  4. ELONTRIL [Concomitant]
     Active Substance: BUPROPION HYDROCHLORIDE
     Indication: DEPRESSION
     Dosage: 150 [MG/D ] FOUR TIMES, UNKNOWN
     Route: 048
  5. TREVILOR RETARD [Suspect]
     Active Substance: VENLAFAXINE HYDROCHLORIDE
     Indication: DEPRESSION
     Dosage: 300 [MG/D ]/REDUCED TO 150MG/D
     Route: 048
     Dates: start: 20150706, end: 20160329
  6. SERTRALINE [Concomitant]
     Active Substance: SERTRALINE HYDROCHLORIDE
     Indication: DEPRESSION
     Dosage: 50 MG, AS NECESSARY
     Route: 048
  7. SALBUTAMOL [Concomitant]
     Active Substance: ALBUTEROL
     Indication: ASTHMA
  8. INUVAIR [Concomitant]
     Active Substance: BECLOMETHASONE DIPROPIONATE\FORMOTEROL FUMARATE
     Indication: ASTHMA
  9. FOLSAEURE [Concomitant]
     Active Substance: FOLIC ACID
     Indication: PROPHYLAXIS OF NEURAL TUBE DEFECT
     Dosage: 0.4 MG, ONCE A DAY
     Route: 048
     Dates: start: 20150706, end: 20160329
  10. AMISULPRID [Suspect]
     Active Substance: AMISULPRIDE
     Indication: DEPRESSION
     Dosage: 300 [MG/D ]/DOSAGE BETWEEN 1 00 AND 300 MG/D
     Route: 048
     Dates: start: 20150706, end: 20160329
  11. BISOPROLOL [Concomitant]
     Active Substance: BISOPROLOL
     Indication: HYPERTENSION
     Dosage: 5 MG, ONCE A DAY
     Route: 048
     Dates: start: 20150706, end: 20160329
  12. ANXUT [Concomitant]
     Indication: DEPRESSION
     Dosage: 30 [MG/D ]/DOSAGE BETWEEN 10 AND 30 MG/D
     Route: 048
  13. ANAFRANIL [Suspect]
     Active Substance: CLOMIPRAMINE HYDROCHLORIDE
     Indication: DEPRESSION
     Dosage: 150 [MG/D ]/ IF REQUIRED, ABOUT EVERY THIRD DAY
     Route: 048
     Dates: start: 20150706, end: 20160329

REACTIONS (3)
  - Pre-eclampsia [Unknown]
  - Gestational diabetes [Unknown]
  - Exposure during pregnancy [Unknown]
